FAERS Safety Report 12671078 (Version 1)
Quarter: 2016Q3

REPORT INFORMATION
  Report Type: Spontaneous
  Country: None (occurrence: None)
  Receive Date: 20160819
  Receipt Date: 20160819
  Transmission Date: 20161109
  Serious: Yes (Disabling)
  Sender: FDA-Public Use
  Company Number: None

PATIENT
  Age: 49 Year
  Sex: Female
  Weight: 63.5 kg

DRUGS (4)
  1. SYNTHROID [Concomitant]
     Active Substance: LEVOTHYROXINE SODIUM
  2. VITAMIN C [Concomitant]
     Active Substance: ASCORBIC ACID
  3. IBANDRONATE, 150 MG ARROW PHARM [Suspect]
     Active Substance: IBANDRONATE SODIUM
     Indication: OSTEOPOROSIS
     Dosage: 1 TABLET ONCE A MONTH TAKEN BY MOUTH
     Route: 048
     Dates: start: 20160815
  4. ZYRTEC-D [Concomitant]
     Active Substance: CETIRIZINE HYDROCHLORIDE\PSEUDOEPHEDRINE HYDROCHLORIDE

REACTIONS (13)
  - Diarrhoea [None]
  - Abdominal pain [None]
  - Asthenia [None]
  - Arthralgia [None]
  - Back pain [None]
  - Abasia [None]
  - Bone pain [None]
  - Myalgia [None]
  - Activities of daily living impaired [None]
  - Nausea [None]
  - Dyspepsia [None]
  - Vomiting [None]
  - Fatigue [None]

NARRATIVE: CASE EVENT DATE: 20160815
